FAERS Safety Report 7220965-2 (Version None)
Quarter: 2011Q1

REPORT INFORMATION
  Report Type: 
  Country: None (occurrence: None)
  Receive Date: 20110112
  Receipt Date: 20101231
  Transmission Date: 20110831
  Serious: Yes (Hospitalization)
  Sender: FDA-Public Use
  Company Number: PHFR2010IE04422

PATIENT
  Sex: Male
  Weight: 85 kg

DRUGS (4)
  1. CLOZARIL [Suspect]
     Indication: SCHIZOPHRENIA
     Dosage: 500 MG
     Route: 048
     Dates: start: 19990315
  2. ATECOR [Concomitant]
     Dosage: 4 MG MANE
  3. ASPIRIN [Concomitant]
     Dosage: 75 MG, QD
  4. LIPITOR [Concomitant]
     Dosage: 20 MG NOCTE

REACTIONS (5)
  - NEUTROPHIL COUNT INCREASED [None]
  - LOWER RESPIRATORY TRACT INFECTION [None]
  - CHEST DISCOMFORT [None]
  - WHITE BLOOD CELL COUNT INCREASED [None]
  - DIFFERENTIAL WHITE BLOOD CELL COUNT ABNORMAL [None]
